FAERS Safety Report 5017729-7 (Version None)
Quarter: 2006Q2

REPORT INFORMATION
  Report Type: 
  Country: None (occurrence: None)
  Receive Date: 20060605
  Receipt Date: 20060526
  Transmission Date: 20061013
  Serious: Yes (Hospitalization)
  Sender: FDA-Public Use
  Company Number: PHBS2006JP07874

PATIENT
  Age: 85 Year
  Sex: Male

DRUGS (3)
  1. AREDIA [Suspect]
     Indication: METASTASES TO BONE
     Route: 065
     Dates: end: 20050901
  2. DEXAMETHASONE TAB [Concomitant]
  3. SAIREI-TO [Concomitant]

REACTIONS (4)
  - DENTURE WEARER [None]
  - METASTASES TO BONE [None]
  - ORAL PAIN [None]
  - OSTEONECROSIS [None]
